FAERS Safety Report 9059968 (Version 1)
Quarter: 2013Q1

REPORT INFORMATION
  Report Type: Spontaneous
  Country: FR (occurrence: FR)
  Receive Date: 20130212
  Receipt Date: 20130212
  Transmission Date: 20140127
  Serious: Yes (Other)
  Sender: FDA-Public Use
  Company Number: FR-ASTRAZENECA-2013SE07266

PATIENT
  Age: 54 Year
  Sex: Female

DRUGS (13)
  1. INEXIUM [Suspect]
     Route: 048
     Dates: start: 20121108, end: 20121120
  2. PARACETAMOL [Suspect]
     Route: 042
     Dates: start: 20121107, end: 20121124
  3. CONTRAMAL [Suspect]
     Route: 048
     Dates: start: 20121028, end: 20121124
  4. ACUPAN [Suspect]
     Route: 042
     Dates: start: 20121028, end: 20121119
  5. PRIMPERAN [Suspect]
     Route: 042
     Dates: start: 20121028, end: 20121123
  6. LANTUS [Concomitant]
     Route: 058
     Dates: start: 20121023, end: 20121206
  7. TRANSIPEG [Concomitant]
     Route: 048
     Dates: start: 20121028, end: 20121203
  8. AMBISOME [Concomitant]
     Dosage: 50 MG, 10 DF EVERY DAY
     Route: 048
     Dates: start: 20121030, end: 20121206
  9. AMLOR [Concomitant]
     Route: 048
     Dates: start: 20121028, end: 20121206
  10. LOVENOX [Concomitant]
     Dosage: 4000 IU ANTI-XA/0.4 M, ONE DF PER DAY
     Route: 058
     Dates: start: 20121117
  11. STILNOX [Concomitant]
     Route: 048
     Dates: start: 20121117, end: 20121206
  12. VITAMIN C [Concomitant]
  13. VERAPAMIL [Concomitant]
     Indication: HYPERTENSION

REACTIONS (4)
  - Sepsis [Recovered/Resolved]
  - Device related infection [Recovered/Resolved]
  - Urinary tract infection enterococcal [Recovered/Resolved]
  - Febrile neutropenia [Recovered/Resolved]
